FAERS Safety Report 17533011 (Version 5)
Quarter: 2021Q4

REPORT INFORMATION
  Report Type: Report from Study
  Country: FR (occurrence: FR)
  Receive Date: 20200312
  Receipt Date: 20211231
  Transmission Date: 20220303
  Serious: Yes (Hospitalization, Disabling, Other)
  Sender: FDA-Public Use
  Company Number: FR-CELGENE-FRA-20200302293

PATIENT
  Age: 68 Year
  Sex: Female
  Weight: 94 kg

DRUGS (3)
  1. LENALIDOMIDE [Suspect]
     Active Substance: LENALIDOMIDE
     Indication: Follicular lymphoma
     Route: 048
     Dates: start: 20121208, end: 20130517
  2. LENALIDOMIDE [Suspect]
     Active Substance: LENALIDOMIDE
     Route: 048
     Dates: start: 20130525, end: 20140425
  3. RITUXIMAB [Concomitant]
     Active Substance: RITUXIMAB
     Indication: Lymphoma
     Route: 065
     Dates: start: 20121207, end: 20150306

REACTIONS (1)
  - Breast cancer [Not Recovered/Not Resolved]

NARRATIVE: CASE EVENT DATE: 20190731
